FAERS Safety Report 7342931-9 (Version None)
Quarter: 2011Q1

REPORT INFORMATION
  Report Type: 
  Country: None (occurrence: None)
  Receive Date: 20110310
  Receipt Date: 20110302
  Transmission Date: 20110831
  Serious: Yes (Hospitalization, Other)
  Sender: FDA-Public Use
  Company Number: US-AMGEN-USASP2011012012

PATIENT
  Age: 53 Year
  Sex: Female

DRUGS (3)
  1. METHOTREXATE [Concomitant]
     Dosage: UNK
     Dates: end: 20101123
  2. ENBREL [Suspect]
     Indication: RHEUMATOID ARTHRITIS
     Dosage: 25 MG, QWK
     Dates: start: 20030101
  3. ORENCIA [Concomitant]
     Dosage: UNK
     Dates: end: 20090101

REACTIONS (13)
  - HEPATIC STEATOSIS [None]
  - PNEUMONIA [None]
  - RESPIRATORY DISORDER [None]
  - VOMITING [None]
  - BRONCHITIS [None]
  - ARTERIOSCLEROSIS CORONARY ARTERY [None]
  - PLEURAL EFFUSION [None]
  - RENAL FAILURE CHRONIC [None]
  - DEHYDRATION [None]
  - CORONARY ARTERY OCCLUSION [None]
  - PERICARDIAL EFFUSION [None]
  - APHAGIA [None]
  - RHEUMATOID ARTHRITIS [None]
